FAERS Safety Report 9951465 (Version 2)
Quarter: 2014Q1

REPORT INFORMATION
  Report Type: Report from Study
  Country: US (occurrence: US)
  Receive Date: 20140304
  Receipt Date: 20140304
  Transmission Date: 20141002
  Serious: No
  Sender: FDA-Public Use
  Company Number: US-ABBVIE-12P-163-0971091-00

PATIENT
  Age: 36 Year
  Sex: Female

DRUGS (3)
  1. HUMIRA [Suspect]
     Indication: PSORIATIC ARTHROPATHY
     Dates: start: 201007
  2. HUMIRA [Suspect]
     Indication: PSORIASIS
     Dates: start: 20110713
  3. HUMIRA [Suspect]
     Indication: RHEUMATOID ARTHRITIS

REACTIONS (6)
  - Mobility decreased [Unknown]
  - Activities of daily living impaired [Unknown]
  - Arthralgia [Not Recovered/Not Resolved]
  - Arthralgia [Not Recovered/Not Resolved]
  - Pain [Not Recovered/Not Resolved]
  - Psoriatic arthropathy [Unknown]
